FAERS Safety Report 14952701 (Version 1)
Quarter: 2018Q2

REPORT INFORMATION
  Report Type: Spontaneous
  Country: FR (occurrence: FR)
  Receive Date: 20180530
  Receipt Date: 20180530
  Transmission Date: 20180711
  Serious: Yes (Hospitalization, Other)
  Sender: FDA-Public Use
  Company Number: FR-MYLANLABS-2018M1034126

PATIENT
  Age: 59 Year
  Sex: Male

DRUGS (2)
  1. VENLAFAXINE [Suspect]
     Active Substance: VENLAFAXINE HYDROCHLORIDE
     Indication: NARCOLEPSY
     Dosage: 300 MG/DL
  2. MODAFINIL. [Suspect]
     Active Substance: MODAFINIL
     Indication: NARCOLEPSY
     Dosage: 300 MG/DL
     Route: 065

REACTIONS (5)
  - Hallucination [Unknown]
  - Hallucination, auditory [Unknown]
  - Sleep paralysis [Unknown]
  - Psychotic disorder [Unknown]
  - Cataplexy [Unknown]
